FAERS Safety Report 9034507 (Version 1)
Quarter: 2013Q1

REPORT INFORMATION
  Report Type: Spontaneous
  Country: US (occurrence: None)
  Receive Date: 20130116
  Receipt Date: 20130116
  Transmission Date: 20140127
  Serious: Yes (Hospitalization)
  Sender: FDA-Public Use
  Company Number: None

PATIENT
  Age: 51 Year
  Sex: Female
  Weight: 71.22 kg

DRUGS (1)
  1. ADVAIR [Suspect]
     Indication: ASTHMA
     Dosage: ONE DOSE TWICE DAILY
     Dates: start: 20121016, end: 20121102

REACTIONS (8)
  - Lip swelling [None]
  - Swollen tongue [None]
  - Pharyngeal oedema [None]
  - Loss of consciousness [None]
  - Vomiting [None]
  - Diarrhoea [None]
  - Dizziness [None]
  - Heart rate increased [None]
